FAERS Safety Report 6724303-0 (Version None)
Quarter: 2010Q2

REPORT INFORMATION
  Report Type: 
  Country: None (occurrence: None)
  Receive Date: 20100513
  Receipt Date: 20100512
  Transmission Date: 20101027
  Serious: Yes (Hospitalization, Other)
  Sender: FDA-Public Use
  Company Number: RU-WYE-H13589010

PATIENT
  Age: 61 Year
  Sex: Male

DRUGS (2)
  1. RAPAMUNE [Suspect]
     Indication: KAPOSI'S SARCOMA
     Route: 048
     Dates: start: 20091201
  2. MYFORTIC [Concomitant]
     Indication: PROPHYLAXIS AGAINST TRANSPLANT REJECTION

REACTIONS (3)
  - DISEASE PROGRESSION [None]
  - DRUG INEFFECTIVE [None]
  - LYMPHOSTASIS [None]
